FAERS Safety Report 5503092-1 (Version None)
Quarter: 2007Q4

REPORT INFORMATION
  Report Type: 
  Country: None (occurrence: None)
  Receive Date: 20071031
  Receipt Date: 20071019
  Transmission Date: 20080405
  Serious: Yes (Other)
  Sender: FDA-Public Use
  Company Number: US-SANOFI-SYNTHELABO-A03200706091

PATIENT
  Sex: Female
  Weight: 68 kg

DRUGS (3)
  1. ASPIRIN [Concomitant]
     Indication: DRUG USE FOR UNKNOWN INDICATION
     Dosage: UNK
     Route: 065
  2. VITAMINS [Concomitant]
     Indication: DRUG USE FOR UNKNOWN INDICATION
     Dosage: UNK
     Route: 065
  3. AMBIEN [Suspect]
     Indication: INSOMNIA
     Dosage: 5MG (1 TAB MOST NIGHTS AT HS, SKIP SOME NIGHTS)
     Route: 048
     Dates: start: 20060101

REACTIONS (3)
  - HYPOACUSIS [None]
  - MENIERE'S DISEASE [None]
  - TINNITUS [None]
